FAERS Safety Report 4851259-8 (Version None)
Quarter: 2005Q4

REPORT INFORMATION
  Report Type: 
  Country: None (occurrence: None)
  Receive Date: 20051208
  Receipt Date: 20051128
  Transmission Date: 20060501
  Serious: Yes (Other)
  Sender: FDA-Public Use
  Company Number: HQWYE792301DEC05

PATIENT
  Age: 11 Year
  Sex: Male
  Weight: 54.48 kg

DRUGS (2)
  1. ALAVERT [Suspect]
     Indication: HYPERSENSITIVITY
     Dosage: SEE IMAGE
     Route: 048
     Dates: start: 20051120, end: 20051120
  2. ALAVERT [Suspect]
     Indication: HYPERSENSITIVITY
     Dosage: SEE IMAGE
     Route: 048
     Dates: start: 20051123, end: 20051123

REACTIONS (3)
  - CONVULSION [None]
  - DYSARTHRIA [None]
  - MONOPLEGIA [None]
